FAERS Safety Report 16681352 (Version 1)
Quarter: 2019Q3

REPORT INFORMATION
  Report Type: Spontaneous
  Country: CZ (occurrence: CZ)
  Receive Date: 20190808
  Receipt Date: 20190808
  Transmission Date: 20191004
  Serious: Yes (Other)
  Sender: FDA-Public Use
  Company Number: CZ-AUROBINDO-AUR-APL-2019-046426

PATIENT

DRUGS (5)
  1. BETAXOLOL. [Suspect]
     Active Substance: BETAXOLOL
     Indication: HYPERTENSION
     Dosage: 1 DOSAGE FORM, ONCE A DAY
     Route: 065
  2. MOXONIDINE [Suspect]
     Active Substance: MOXONIDINE
     Indication: HYPERTENSION
     Dosage: 1 DOSAGE FORM (QN (AT NIGHT))
     Route: 065
  3. HYDROCHLOROTHIAZIDE;TELMISARTAN [Suspect]
     Active Substance: HYDROCHLOROTHIAZIDE\TELMISARTAN
     Indication: HYPERTENSION
     Dosage: 1 DOSAGE FORM, ONCE A DAY (80 MG TELMISARTAN/12.5 MG HYDROCHLORTHIAZIDEIN THE MORNING)
     Route: 065
  4. URAPIDIL [Suspect]
     Active Substance: URAPIDIL
     Indication: HYPERTENSION
     Dosage: 2 DOSAGE FORM, ONCE A DAY (1 DF, BID (IN THE MORNING AND AT NIGHT))
     Route: 065
  5. AMLODIPINE [Suspect]
     Active Substance: AMLODIPINE BESYLATE
     Indication: HYPERTENSION
     Dosage: 1 DOSAGE FORM (1 DF, QN)
     Route: 065

REACTIONS (5)
  - Hypercholesterolaemia [Unknown]
  - Diabetes mellitus [Unknown]
  - Hypertension [Recovering/Resolving]
  - Albuminuria [Recovering/Resolving]
  - Hyperglycaemia [Unknown]
